FAERS Safety Report 7287496-5 (Version None)
Quarter: 2011Q1

REPORT INFORMATION
  Report Type: 
  Country: None (occurrence: None)
  Receive Date: 20110211
  Receipt Date: 20110207
  Transmission Date: 20110831
  Serious: Yes (Death)
  Sender: FDA-Public Use
  Company Number: LT-BRISTOL-MYERS SQUIBB COMPANY-15533375

PATIENT
  Age: 60 Year
  Sex: Male

DRUGS (1)
  1. MEGACE [Suspect]
     Indication: CACHEXIA
     Dosage: 1DF:40MG/ML
     Route: 048

REACTIONS (2)
  - FLUSHING [None]
  - DEATH [None]
